FAERS Safety Report 17094125 (Version 2)
Quarter: 2019Q4

REPORT INFORMATION
  Report Type: Report from Study
  Country: JP (occurrence: JP)
  Receive Date: 20191129
  Receipt Date: 20191210
  Transmission Date: 20200122
  Serious: No
  Sender: FDA-Public Use
  Company Number: JP-ALLERGAN-1948791US

PATIENT
  Sex: Male

DRUGS (2)
  1. TERNELIN [Concomitant]
     Active Substance: TIZANIDINE
  2. BOTULINUM TOXIN TYPE A - GENERAL (9060X) [Suspect]
     Active Substance: BOTULINUM TOXIN TYPE A
     Indication: JOINT STIFFNESS
     Dosage: 200 UNITS, SINGLE
     Route: 030
     Dates: start: 20191113, end: 20191113

REACTIONS (3)
  - Injection site haemorrhage [Recovered/Resolved]
  - Condition aggravated [Not Recovered/Not Resolved]
  - Joint stiffness [Not Recovered/Not Resolved]

NARRATIVE: CASE EVENT DATE: 201911
